FAERS Safety Report 7535517-4 (Version None)
Quarter: 2011Q2

REPORT INFORMATION
  Report Type: 
  Country: None (occurrence: None)
  Receive Date: 20110609
  Receipt Date: 20110601
  Transmission Date: 20111010
  Serious: Yes (Other)
  Sender: FDA-Public Use
  Company Number: JP-JNJFOC-20110502689

PATIENT
  Sex: Female
  Weight: 45 kg

DRUGS (5)
  1. CONCERTA [Suspect]
     Route: 048
     Dates: start: 20090801, end: 20091009
  2. RISPERDAL [Concomitant]
     Route: 048
     Dates: start: 20100403, end: 20100507
  3. CONCERTA [Suspect]
     Indication: ATTENTION DEFICIT/HYPERACTIVITY DISORDER
     Route: 048
     Dates: start: 20090714, end: 20090731
  4. CONCERTA [Suspect]
     Route: 048
     Dates: start: 20091010, end: 20100713
  5. DEPAKENE [Concomitant]
     Route: 048
     Dates: start: 20100508, end: 20100713

REACTIONS (2)
  - WEIGHT DECREASED [None]
  - DECREASED APPETITE [None]
